FAERS Safety Report 7753641-8 (Version None)
Quarter: 2011Q3

REPORT INFORMATION
  Report Type: 
  Country: None (occurrence: None)
  Receive Date: 20110915
  Receipt Date: 20110908
  Transmission Date: 20111222
  Serious: Yes (Hospitalization)
  Sender: FDA-Public Use
  Company Number: ES-GLAXOSMITHKLINE-B0747295A

PATIENT
  Sex: Male

DRUGS (1)
  1. CHLORAMBUCIL [Suspect]
     Indication: CHRONIC LYMPHOCYTIC LEUKAEMIA
     Dosage: 42MG EVERY TWO WEEKS
     Route: 048
     Dates: start: 20110512, end: 20110822

REACTIONS (1)
  - RESPIRATORY TRACT INFECTION [None]
